FAERS Safety Report 6971935-0 (Version None)
Quarter: 2010Q3

REPORT INFORMATION
  Report Type: 
  Country: None (occurrence: None)
  Receive Date: 20100908
  Receipt Date: 20100908
  Transmission Date: 20110219
  Serious: No
  Sender: FDA-Public Use
  Company Number: None

PATIENT
  Age: 71 Year
  Sex: Female
  Weight: 72.5755 kg

DRUGS (1)
  1. ENALAPRIL MALEATE [Suspect]
     Dosage: 5 MILLIGRAMS ONE PER DAY PO
     Route: 048
     Dates: start: 20100615, end: 20100901

REACTIONS (1)
  - HOT FLUSH [None]
